FAERS Safety Report 25618832 (Version 1)
Quarter: 2025Q3

REPORT INFORMATION
  Report Type: Spontaneous
  Country: US (occurrence: None)
  Receive Date: 20250729
  Receipt Date: 20250729
  Transmission Date: 20251021
  Serious: Yes (Hospitalization, Disabling)
  Sender: FDA-CTU
  Company Number: None

PATIENT
  Age: 54 Year
  Sex: Female

DRUGS (3)
  1. PROZAC [Suspect]
     Active Substance: FLUOXETINE HYDROCHLORIDE
     Indication: Anxiety
     Dates: start: 19910101, end: 19930601
  2. CELEXA [Suspect]
     Active Substance: CITALOPRAM HYDROBROMIDE
  3. LEXAPRO [Suspect]
     Active Substance: ESCITALOPRAM OXALATE

REACTIONS (7)
  - Restless legs syndrome [None]
  - Sexual dysfunction [None]
  - Withdrawal syndrome [None]
  - Depression [None]
  - Anxiety [None]
  - Impaired quality of life [None]
  - Suicidal ideation [None]
